FAERS Safety Report 7833983-8 (Version None)
Quarter: 2011Q4

REPORT INFORMATION
  Report Type: 
  Country: None (occurrence: None)
  Receive Date: 20111024
  Receipt Date: 20111022
  Transmission Date: 20120403
  Serious: Yes (Other)
  Sender: FDA-Public Use
  Company Number: US-JNJFOC-20060906235

PATIENT
  Sex: Female

DRUGS (3)
  1. RISPERDAL [Suspect]
     Indication: ANXIETY
     Route: 065
  2. SEROQUEL [Concomitant]
     Dosage: 1/4
     Route: 065
  3. RISPERDAL [Suspect]
     Indication: DEPRESSION
     Route: 065

REACTIONS (2)
  - TYPE 2 DIABETES MELLITUS [None]
  - DIABETIC NEUROPATHY [None]
